FAERS Safety Report 16085942 (Version 2)
Quarter: 2019Q2

REPORT INFORMATION
  Report Type: Spontaneous
  Country: US (occurrence: US)
  Receive Date: 20190318
  Receipt Date: 20190401
  Transmission Date: 20190711
  Serious: Yes (Other)
  Sender: FDA-Public Use
  Company Number: US-JNJFOC-20190311791

PATIENT
  Age: 28 Year
  Sex: Female
  Weight: 58.97 kg

DRUGS (2)
  1. XANAX [Concomitant]
     Active Substance: ALPRAZOLAM
     Indication: PRODUCT USED FOR UNKNOWN INDICATION
     Route: 065
  2. NEUTROGENA DEEP CLEAN INVIGORATING FOAMING SCRUB [Suspect]
     Active Substance: COSMETICS
     Indication: ACCIDENTAL EXPOSURE TO PRODUCT
     Route: 047
     Dates: start: 2018

REACTIONS (4)
  - Dry eye [Recovered/Resolved]
  - Granuloma [Recovered/Resolved]
  - Foreign body in eye [Recovered/Resolved]
  - Accidental exposure to product [Unknown]

NARRATIVE: CASE EVENT DATE: 201809
